FAERS Safety Report 8933450 (Version 1)
Quarter: 2012Q4

REPORT INFORMATION
  Report Type: 
  Country: US (occurrence: US)
  Receive Date: 20121128
  Receipt Date: 20121128
  Transmission Date: 20130627
  Serious: Yes (Other)
  Sender: FDA-Public Use
  Company Number: US-MYLANLABS-2012S1023986

PATIENT
  Age: 40 Year
  Sex: Female

DRUGS (1)
  1. MINOCYCLINE [Suspect]
     Route: 065

REACTIONS (1)
  - Polyarteritis nodosa [Unknown]
